FAERS Safety Report 11202702 (Version 2)
Quarter: 2015Q3

REPORT INFORMATION
  Report Type: Spontaneous
  Country: JP (occurrence: JP)
  Receive Date: 20150619
  Receipt Date: 20150814
  Transmission Date: 20151125
  Serious: Yes (Other)
  Sender: FDA-Public Use
  Company Number: JP-SUCAMPO PHARMA AMERICAS, LLC-SPI201500556

PATIENT
  Sex: Female
  Weight: 47 kg

DRUGS (3)
  1. AMITIZA [Suspect]
     Active Substance: LUBIPROSTONE
     Indication: CONSTIPATION
     Dosage: 24 MCG, UNK
     Route: 048
     Dates: start: 20140417, end: 20141224
  2. TRYPTANOL [Concomitant]
     Active Substance: AMITRIPTYLINE
     Indication: WOUND COMPLICATION
     Dosage: 5 MG, BID
     Route: 048
     Dates: start: 20130418
  3. AMITIZA [Suspect]
     Active Substance: LUBIPROSTONE
     Dosage: 24 UNK, UNK
     Route: 048
     Dates: start: 20141225, end: 20150423

REACTIONS (6)
  - Headache [Unknown]
  - Wound complication [Unknown]
  - Inappropriate schedule of drug administration [None]
  - Back pain [Unknown]
  - Pain in extremity [Unknown]
  - Carcinoembryonic antigen increased [Unknown]

NARRATIVE: CASE EVENT DATE: 2015
